FAERS Safety Report 9454374 (Version 1)
Quarter: 2013Q3

REPORT INFORMATION
  Report Type: Spontaneous
  Country: US (occurrence: US)
  Receive Date: 20130812
  Receipt Date: 20130812
  Transmission Date: 20140515
  Serious: Yes (Other)
  Sender: FDA-Public Use
  Company Number: US-PFIZER INC-2013229786

PATIENT
  Age: 58 Year
  Sex: Male
  Weight: 126.98 kg

DRUGS (6)
  1. CELEBREX [Suspect]
     Indication: BACK PAIN
     Dosage: 200 MG, ONCE OR TWICE A WEEK
     Route: 048
     Dates: start: 200405
  2. CELEBREX [Suspect]
     Indication: PAIN IN EXTREMITY
     Dosage: 200 MG, UNK
     Route: 048
     Dates: end: 2010
  3. CELEBREX [Suspect]
     Dosage: 200 MG, FOUR TO FIVE TIMES A WEEK
     Route: 048
     Dates: start: 2010
  4. CELEBREX [Suspect]
     Dosage: 200 MG, 1X/DAY
     Route: 048
  5. OPANA ER [Concomitant]
     Dosage: UNK, 4X/DAY
  6. TRAZODONE [Concomitant]
     Indication: SLEEP DISORDER
     Dosage: UNK

REACTIONS (3)
  - Inappropriate schedule of drug administration [Unknown]
  - Road traffic accident [Unknown]
  - Headache [Unknown]
